FAERS Safety Report 21318190 (Version 1)
Quarter: 2022Q3

REPORT INFORMATION
  Report Type: Spontaneous
  Country: US (occurrence: US)
  Receive Date: 20220911
  Receipt Date: 20220911
  Transmission Date: 20221026
  Serious: No
  Sender: FDA-Public Use
  Company Number: US-SA-SAC20220826001182

PATIENT
  Age: 64 Year
  Sex: Female
  Weight: 51 kg

DRUGS (8)
  1. AUBAGIO [Suspect]
     Active Substance: TERIFLUNOMIDE
     Indication: Multiple sclerosis
     Route: 048
     Dates: start: 2015
  2. GABAPENTIN [Concomitant]
     Active Substance: GABAPENTIN
     Indication: Tremor
     Dosage: 400 MG
  3. TYLENOL [Concomitant]
     Active Substance: ACETAMINOPHEN
     Indication: Headache
     Dosage: UNK
  4. VICODIN [Concomitant]
     Active Substance: ACETAMINOPHEN\HYDROCODONE BITARTRATE
     Indication: Internal haemorrhage
     Dosage: UNK
  5. IBUPROFEN [Concomitant]
     Active Substance: IBUPROFEN
     Indication: Internal haemorrhage
     Dosage: UNK
  6. CELEXAL [Concomitant]
     Dosage: 20 MG
  7. LISINOPRIL [Concomitant]
     Active Substance: LISINOPRIL
     Dosage: 40 MG
  8. LANTUS [Concomitant]
     Active Substance: INSULIN GLARGINE
     Dosage: 400MG
     Route: 042

REACTIONS (3)
  - Tremor [Unknown]
  - Pain [Unknown]
  - Headache [Unknown]
